FAERS Safety Report 6883858-6 (Version None)
Quarter: 2010Q3

REPORT INFORMATION
  Report Type: 
  Country: None (occurrence: None)
  Receive Date: 20100729
  Receipt Date: 20100726
  Transmission Date: 20110219
  Serious: Yes (Hospitalization)
  Sender: FDA-Public Use
  Company Number: FR-BRISTOL-MYERS SQUIBB COMPANY-15211204

PATIENT
  Age: 74 Year
  Sex: Male

DRUGS (9)
  1. COUMADIN [Suspect]
     Route: 048
     Dates: end: 20100618
  2. ZOLPIDEM [Suspect]
     Route: 048
     Dates: end: 20100618
  3. BUMEX [Suspect]
     Route: 048
     Dates: end: 20100614
  4. PRITOR [Suspect]
     Route: 048
     Dates: start: 20100501, end: 20100611
  5. ALLOPURINOL [Suspect]
     Indication: GOUT
     Route: 048
     Dates: start: 20100511, end: 20100611
  6. DEDROGYL [Suspect]
     Route: 048
     Dates: start: 20100511, end: 20100615
  7. SPECIAFOLDINE [Suspect]
     Route: 048
     Dates: start: 20100511, end: 20100611
  8. NEORECORMON [Suspect]
     Route: 058
     Dates: start: 20100511, end: 20100618
  9. TARDYFERON [Suspect]
     Route: 048
     Dates: end: 20100611

REACTIONS (5)
  - ANGIOEDEMA [None]
  - DERMATITIS EXFOLIATIVE [None]
  - GENERALISED OEDEMA [None]
  - PURPURA [None]
  - PYREXIA [None]
